FAERS Safety Report 9124497 (Version 2)
Quarter: 2013Q1

REPORT INFORMATION
  Report Type: Spontaneous
  Country: US (occurrence: US)
  Receive Date: 20130227
  Receipt Date: 20130304
  Transmission Date: 20140127
  Serious: Yes (Other)
  Sender: FDA-Public Use
  Company Number: US-EISAI INC-E2080-00592-SPO-US

PATIENT
  Age: 3 Year
  Sex: Female

DRUGS (7)
  1. BANZEL [Suspect]
     Indication: EPILEPSY
     Dosage: 3ML / 120 MG/DAY
     Route: 048
     Dates: start: 201207, end: 2012
  2. BANZEL [Suspect]
     Dosage: 5 ML/200 MG/DAY
     Route: 048
     Dates: start: 2012, end: 2012
  3. BANZEL [Suspect]
     Dosage: 6 ML/ 240 MG/DAY
     Route: 048
     Dates: start: 2012, end: 201211
  4. BANZEL [Suspect]
     Dosage: 8 ML/ 320 MG/DAY
     Route: 048
     Dates: start: 201211
  5. ONFI [Concomitant]
  6. KEPPRA [Concomitant]
  7. SABRIL [Concomitant]

REACTIONS (1)
  - Nephrotic syndrome [Not Recovered/Not Resolved]
